FAERS Safety Report 7580335-4 (Version None)
Quarter: 2011Q2

REPORT INFORMATION
  Report Type: 
  Country: None (occurrence: None)
  Receive Date: 20110629
  Receipt Date: 20110620
  Transmission Date: 20111010
  Serious: Yes (Hospitalization, Other)
  Sender: FDA-Public Use
  Company Number: LB-ROCHE-780074

PATIENT
  Age: 65 Year
  Sex: Female

DRUGS (1)
  1. HERCEPTIN [Suspect]
     Indication: BREAST CANCER
     Dosage: FORM: INFUSION. LOADING DOSE, TOTAL DOSE: 600 MG
     Route: 042
     Dates: start: 20110531

REACTIONS (4)
  - PYREXIA [None]
  - NERVOUS SYSTEM DISORDER [None]
  - SEPTIC SHOCK [None]
  - INFUSION RELATED REACTION [None]
